FAERS Safety Report 5798079-8 (Version None)
Quarter: 2008Q3

REPORT INFORMATION
  Report Type: 
  Country: None (occurrence: None)
  Receive Date: 20080702
  Receipt Date: 20080313
  Transmission Date: 20090109
  Serious: No
  Sender: FDA-Public Use
  Company Number: US-ASTRAZENECA-2008UW05133

PATIENT
  Age: 65 Year
  Sex: Male
  Weight: 86.2 kg

DRUGS (3)
  1. ZOLADEX [Suspect]
     Indication: PROSTATE CANCER
     Route: 058
     Dates: start: 20080311
  2. AMLODIPINE [Concomitant]
  3. COLCHICINE [Concomitant]

REACTIONS (2)
  - ARTHRALGIA [None]
  - DRUG INTERACTION [None]
